FAERS Safety Report 5482819-1 (Version None)
Quarter: 2007Q4

REPORT INFORMATION
  Report Type: 
  Country: None (occurrence: None)
  Receive Date: 20071011
  Receipt Date: 20071001
  Transmission Date: 20080405
  Serious: Yes (Other)
  Sender: FDA-Public Use
  Company Number: US-PFIZER INC-2007043234

PATIENT
  Sex: Female
  Weight: 74.8 kg

DRUGS (1)
  1. BEXTRA [Suspect]
     Indication: ARTHRALGIA
     Route: 048
     Dates: start: 20040602, end: 20040701

REACTIONS (1)
  - TRANSIENT ISCHAEMIC ATTACK [None]
